FAERS Safety Report 4958349-X (Version None)
Quarter: 2006Q1

REPORT INFORMATION
  Report Type: 
  Country: None (occurrence: None)
  Receive Date: 20060329
  Receipt Date: 20060329
  Transmission Date: 20060701
  Serious: Yes (Other)
  Sender: FDA-Public Use
  Company Number: None

PATIENT
  Weight: 27.7 kg

DRUGS (2)
  1. TAMIFLU [Suspect]
     Dosage: ORAL
     Route: 048
  2. ANTIBIOTIC [Concomitant]

REACTIONS (3)
  - FATIGUE [None]
  - INCORRECT DOSE ADMINISTERED [None]
  - NAUSEA [None]
